FAERS Safety Report 16589530 (Version 1)
Quarter: 2019Q3

REPORT INFORMATION
  Report Type: Report from Study
  Country: IT (occurrence: IT)
  Receive Date: 20190718
  Receipt Date: 20190718
  Transmission Date: 20191004
  Serious: Yes (Other)
  Sender: FDA-Public Use
  Company Number: IT-ACCORD-138926

PATIENT
  Age: 75 Year
  Sex: Female

DRUGS (13)
  1. STILNOX [Interacting]
     Active Substance: ZOLPIDEM TARTRATE
     Indication: INSOMNIA
     Route: 048
     Dates: start: 20180128, end: 20190131
  2. QUETIAPINE. [Suspect]
     Active Substance: QUETIAPINE
     Indication: PSYCHOTIC DISORDER
     Route: 048
     Dates: start: 20190128, end: 20190131
  3. CLOPIXOL [Suspect]
     Active Substance: ZUCLOPENTHIXOL
     Indication: PSYCHOTIC DISORDER
     Dosage: STRENGTH: 20 MG/ML
     Route: 048
     Dates: start: 20190107, end: 20190121
  4. SODIO VALPROATO/SODIO VALPROATO/ACIDO VALPROICO [Suspect]
     Active Substance: VALPROATE SODIUM
     Indication: EPILEPSY
     Route: 048
     Dates: start: 20190124, end: 20190128
  5. LEVOPRAID (LEVOSULPIRIDE) [Suspect]
     Active Substance: LEVOSULPIRIDE
     Indication: PSYCHOTIC DISORDER
     Route: 048
     Dates: start: 20190124, end: 20190128
  6. TALOFEN [Interacting]
     Active Substance: PROMAZINE HYDROCHLORIDE
     Indication: PSYCHOTIC DISORDER
     Dosage: STRENGTH: 4 G/100 ML
     Route: 048
     Dates: start: 20190121, end: 20190131
  7. DEPAKIN CHRONO [Interacting]
     Active Substance: VALPROIC ACID
     Indication: EPILEPSY
     Route: 048
     Dates: start: 20190121, end: 20190124
  8. QUETIAPINE FUMARATE. [Suspect]
     Active Substance: QUETIAPINE FUMARATE
     Indication: PSYCHOTIC DISORDER
     Route: 048
     Dates: start: 20190121, end: 20190124
  9. DEPAKIN CHRONO [Interacting]
     Active Substance: VALPROIC ACID
     Indication: EPILEPSY
     Route: 048
     Dates: start: 20190128, end: 20190131
  10. TAVOR (LORAZEPAM) [Interacting]
     Active Substance: LORAZEPAM
     Indication: ANXIETY
     Route: 048
     Dates: start: 20190128, end: 20190131
  11. QUETIAPINE FUMARATE. [Suspect]
     Active Substance: QUETIAPINE FUMARATE
     Indication: PSYCHOTIC DISORDER
     Route: 048
     Dates: start: 20190124, end: 20190128
  12. ZOLPIDEM TARTRATO [Suspect]
     Active Substance: ZOLPIDEM TARTRATE
     Indication: INSOMNIA
     Route: 048
     Dates: start: 20190121, end: 20190124
  13. ZOLPIDEM TARTRATO [Suspect]
     Active Substance: ZOLPIDEM TARTRATE
     Indication: INSOMNIA
     Route: 048
     Dates: start: 20190124, end: 20190128

REACTIONS (5)
  - Gait disturbance [Recovering/Resolving]
  - Persecutory delusion [Recovering/Resolving]
  - Dysphagia [Recovering/Resolving]
  - Drug interaction [Unknown]
  - Bradyphrenia [Recovering/Resolving]

NARRATIVE: CASE EVENT DATE: 20190128
